FAERS Safety Report 7384049-5 (Version None)
Quarter: 2011Q1

REPORT INFORMATION
  Report Type: 
  Country: None (occurrence: None)
  Receive Date: 20110330
  Receipt Date: 20110318
  Transmission Date: 20110831
  Serious: Yes (Other)
  Sender: FDA-Public Use
  Company Number: PHHY2011IT22533

PATIENT
  Sex: Female
  Weight: 13 kg

DRUGS (1)
  1. AMOXICILLIN AND CLAVULANATE POTASSIUM [Suspect]

REACTIONS (11)
  - PYREXIA [None]
  - HYPERAEMIA [None]
  - PRURITUS [None]
  - EPSTEIN-BARR VIRUS INFECTION [None]
  - HEPATITIS CHOLESTATIC [None]
  - ANGIOEDEMA [None]
  - BILIARY TRACT DISORDER [None]
  - STEVENS-JOHNSON SYNDROME [None]
  - RASH [None]
  - PEMPHIGUS [None]
  - HEPATOMEGALY [None]
